FAERS Safety Report 5779625-7 (Version None)
Quarter: 2008Q2

REPORT INFORMATION
  Report Type: 
  Country: None (occurrence: None)
  Receive Date: 20080619
  Receipt Date: 20070604
  Transmission Date: 20081010
  Serious: No
  Sender: FDA-Public Use
  Company Number: US-ASTRAZENECA-2007UW13407

PATIENT

DRUGS (2)
  1. ATACAND HCT [Suspect]
     Dosage: 16 - 12.5 MG
     Route: 048
  2. ATACAND HCT [Suspect]
     Dosage: 16 - 12.5 MG
     Route: 048

REACTIONS (1)
  - HAEMORRHOIDS [None]
